FAERS Safety Report 25265188 (Version 1)
Quarter: 2025Q2

REPORT INFORMATION
  Report Type: Spontaneous
  Country: CN (occurrence: CN)
  Receive Date: 20250502
  Receipt Date: 20250502
  Transmission Date: 20250716
  Serious: Yes (Hospitalization)
  Sender: GALPHARM INTERNATIONAL
  Company Number: CN-MLMSERVICE-20250414-PI478009-00029-1

PATIENT
  Age: 50 Year
  Sex: Male

DRUGS (1)
  1. ACETAMINOPHEN [Suspect]
     Active Substance: ACETAMINOPHEN
     Indication: Migraine without aura
     Dosage: 3.25 G, QD
     Route: 048

REACTIONS (2)
  - Cytotoxic lesions of corpus callosum [Recovered/Resolved]
  - Intentional overdose [Recovered/Resolved]
